FAERS Safety Report 7375395-X (Version None)
Quarter: 2011Q1

REPORT INFORMATION
  Report Type: 
  Country: None (occurrence: None)
  Receive Date: 20110325
  Receipt Date: 20110315
  Transmission Date: 20110831
  Serious: Yes (Death)
  Sender: FDA-Public Use
  Company Number: NL-BAXTER-2011BH006830

PATIENT
  Age: 57 Year
  Sex: Female
  Weight: 68 kg

DRUGS (3)
  1. DOXORUBICIN GENERIC [Suspect]
     Indication: BREAST CANCER
     Dosage: 50 MG/M2
     Route: 042
     Dates: start: 20100715
  2. CYCLOPHOSPHAMIDE [Suspect]
     Indication: BREAST CANCER
     Dosage: 500 MG/M2
     Route: 042
     Dates: start: 20100715
  3. DOCETAXEL [Suspect]
     Indication: BREAST CANCER
     Dosage: 75 MG/M2 IV
     Route: 042
     Dates: start: 20100715

REACTIONS (1)
  - NEUTROPENIC COLITIS [None]
